FAERS Safety Report 16342910 (Version 1)
Quarter: 2019Q2

REPORT INFORMATION
  Report Type: Spontaneous
  Country: US (occurrence: US)
  Receive Date: 20190521
  Receipt Date: 20190521
  Transmission Date: 20190711
  Serious: Yes (Other)
  Sender: FDA-Public Use
  Company Number: None

PATIENT
  Age: 47 Year
  Sex: Male
  Weight: 72.45 kg

DRUGS (2)
  1. MULTIHANCE [Suspect]
     Active Substance: GADOBENATE DIMEGLUMINE
     Indication: PITUITARY TUMOUR
     Route: 040
     Dates: start: 20190506, end: 20190506
  2. MULTIHANCE [Concomitant]
     Active Substance: GADOBENATE DIMEGLUMINE
     Dates: start: 20190506, end: 20190506

REACTIONS (2)
  - Arthralgia [None]
  - Headache [None]

NARRATIVE: CASE EVENT DATE: 20190506
